FAERS Safety Report 9513100 (Version 2)
Quarter: 2013Q3

REPORT INFORMATION
  Report Type: Spontaneous
  Country: US (occurrence: US)
  Receive Date: 20130910
  Receipt Date: 20130913
  Transmission Date: 20140515
  Serious: No
  Sender: FDA-Public Use
  Company Number: US-BAXTER-2013BAX034139

PATIENT
  Age: 55 Year
  Sex: Male
  Weight: 85.9 kg

DRUGS (1)
  1. GAMMAGARD LIQUID [Suspect]
     Indication: HYPOGAMMAGLOBULINAEMIA
     Route: 058
     Dates: start: 201308, end: 20130826

REACTIONS (2)
  - Hypotension [Recovered/Resolved]
  - Presyncope [Recovered/Resolved]
